FAERS Safety Report 9095256 (Version 3)
Quarter: 2013Q2

REPORT INFORMATION
  Report Type: Spontaneous
  Country: FR (occurrence: FR)
  Receive Date: 20130219
  Receipt Date: 20130401
  Transmission Date: 20140414
  Serious: Yes (Death, Hospitalization, Other)
  Sender: FDA-Public Use
  Company Number: FR-MERCK-1302FRA004994

PATIENT
  Age: 74 Year
  Sex: Female
  Weight: 46 kg

DRUGS (9)
  1. SINEMET L.P. [Suspect]
     Indication: PARKINSON^S DISEASE
     Dosage: 3 DF, QD
     Route: 048
     Dates: start: 1998, end: 2010
  2. SINEMET L.P. [Interacting]
     Dosage: 2 DF, QD
     Route: 048
     Dates: start: 2010, end: 20100129
  3. SINEMET L.P. [Interacting]
     Dosage: 6 DF, QD
     Route: 048
     Dates: start: 20100129, end: 20100302
  4. SINEMET L.P. [Interacting]
     Dosage: 3 DF, QD
     Route: 048
     Dates: start: 20100302, end: 20100305
  5. TARDYFERON [Interacting]
     Indication: ANAEMIA
     Dosage: 2 DF, QD
     Route: 048
     Dates: start: 20100118, end: 20100305
  6. LEPTICUR [Concomitant]
     Indication: PARKINSON^S DISEASE
     Dosage: 10 MG, QD
     Route: 048
     Dates: start: 2005
  7. PRITOR [Concomitant]
     Indication: PARKINSON^S DISEASE
     Dosage: 40 MG, QD
     Route: 048
     Dates: start: 2005
  8. OROKEN [Concomitant]
     Dosage: UNK
     Dates: start: 2010
  9. VANCOMYCIN [Concomitant]
     Dosage: 1 G, QD
     Dates: start: 20100106

REACTIONS (13)
  - Parkinson^s disease [Fatal]
  - Drug interaction [Not Recovered/Not Resolved]
  - Wrong technique in drug usage process [Unknown]
  - Drug ineffective [Not Recovered/Not Resolved]
  - Pneumonia aspiration [Fatal]
  - Medical device complication [Recovered/Resolved]
  - Urinary tract infection [Unknown]
  - Dysphagia [Not Recovered/Not Resolved]
  - Malnutrition [Unknown]
  - Anaemia [Unknown]
  - Pubis fracture [Unknown]
  - Femoral neck fracture [Recovered/Resolved]
  - Fall [Recovered/Resolved]
